FAERS Safety Report 13945164 (Version 8)
Quarter: 2017Q4

REPORT INFORMATION
  Report Type: Spontaneous
  Country: JP (occurrence: JP)
  Receive Date: 20170907
  Receipt Date: 20171229
  Transmission Date: 20180320
  Serious: Yes (Other)
  Sender: FDA-Public Use
  Company Number: JP-PFIZER INC-2017050048

PATIENT
  Age: 40 Year
  Sex: Female
  Weight: 45 kg

DRUGS (20)
  1. MYCOBUTIN [Concomitant]
     Active Substance: RIFABUTIN
     Dosage: 300 MG, 1X/DAY
     Route: 048
     Dates: start: 20160409, end: 20170904
  2. URSO [Concomitant]
     Active Substance: URSODIOL
     Dosage: 200 MG, 3X/DAY
     Route: 048
     Dates: start: 20170828
  3. METHYCOBAL [Concomitant]
     Active Substance: METHYLCOBALAMIN
     Dosage: ONE PACKAGE (1%) 1X/DAY
     Route: 048
     Dates: start: 20170801
  4. ZYVOX [Suspect]
     Active Substance: LINEZOLID
     Indication: TUBERCULOSIS
     Dosage: 600 MG, 1X/DAY
     Route: 048
     Dates: start: 20170216, end: 20170904
  5. TUBERACTIN /00300501/ [Concomitant]
     Active Substance: ENVIOMYCIN SULFATE
     Dosage: 1 G, 1X/DAY
     Route: 030
     Dates: start: 20170216, end: 20170904
  6. DELTYBA [Concomitant]
     Active Substance: DELAMANID
     Dosage: 100 MG, 2X/DAY
     Route: 048
     Dates: start: 20170915
  7. CYCLOSERINE. [Concomitant]
     Active Substance: CYCLOSERINE
     Dosage: UNK
     Dates: start: 20170915
  8. ZYVOX [Suspect]
     Active Substance: LINEZOLID
     Dosage: 600 MG, 1X/DAY
     Route: 048
     Dates: start: 20170915
  9. AUGMENTIN [Suspect]
     Active Substance: AMOXICILLIN\CLAVULANATE POTASSIUM
     Dosage: 250 MG, 3X/DAY
     Route: 048
     Dates: start: 20170216, end: 20170904
  10. MYCOBUTIN [Concomitant]
     Active Substance: RIFABUTIN
     Dosage: 300 MG, 1X/DAY
     Route: 048
     Dates: start: 20170915
  11. CYCLOSERINE. [Concomitant]
     Active Substance: CYCLOSERINE
     Dosage: 250 MG, 2X/DAY
     Route: 048
     Dates: start: 20050304, end: 20170904
  12. FERROUS CITRATE [Concomitant]
     Active Substance: FERROUS CITRATE
     Dosage: 100 MG, 1X/DAY
     Route: 048
     Dates: end: 20170831
  13. TUBERACTIN /00300501/ [Concomitant]
     Active Substance: ENVIOMYCIN SULFATE
     Dosage: 1 G, 1X/DAY
     Route: 030
     Dates: start: 20170915
  14. LAMPREN [Concomitant]
     Active Substance: CLOFAZIMINE
     Dosage: 200 MG, 1X/DAY
     Route: 048
     Dates: start: 20170915
  15. URSO [Concomitant]
     Active Substance: URSODIOL
     Dosage: 250 MG, DAILY
     Route: 048
     Dates: start: 20170731, end: 20170827
  16. MEROPENEM 0.25G PFIZER (MEROPENEM) [Suspect]
     Active Substance: MEROPENEM
     Dosage: 1 G, 3X/DAY
     Route: 042
     Dates: start: 20170216, end: 20170904
  17. DELTYBA [Concomitant]
     Active Substance: DELAMANID
     Dosage: 100 MG, 2X/DAY
     Route: 048
     Dates: start: 20170216, end: 20170904
  18. MONOAMMONIUM GLYCYRRHIZINATE [Concomitant]
     Active Substance: AMMONIUM GLYCYRRHIZATE
     Dosage: UNK
     Dates: start: 20170831, end: 20170920
  19. LAMPREN [Concomitant]
     Active Substance: CLOFAZIMINE
     Dosage: 200 MG, 1X/DAY
     Route: 048
     Dates: start: 20170216, end: 20170904
  20. SHIGMABITAN /00274301/ [Concomitant]
     Dosage: 1 DF, 4X/DAY
     Route: 048
     Dates: start: 20170802

REACTIONS (5)
  - Bone marrow failure [Recovered/Resolved with Sequelae]
  - Hepatic function abnormal [Recovered/Resolved]
  - Pain in extremity [Unknown]
  - Hypoaesthesia [Not Recovered/Not Resolved]
  - Product use issue [Unknown]

NARRATIVE: CASE EVENT DATE: 2017
